FAERS Safety Report 26126791 (Version 1)
Quarter: 2025Q4

REPORT INFORMATION
  Report Type: Spontaneous
  Country: EU (occurrence: EU)
  Receive Date: 20251205
  Receipt Date: 20251205
  Transmission Date: 20260118
  Serious: Yes (Hospitalization)
  Sender: TEVA
  Company Number: None

PATIENT
  Age: 15 Year
  Sex: Female
  Weight: 50 kg

DRUGS (3)
  1. IBUPROFEN [Suspect]
     Active Substance: IBUPROFEN
     Indication: Suicide attempt
     Dosage: TIME INTERVAL: TOTAL
     Route: 048
     Dates: start: 20250930, end: 20250930
  2. QUETIAPINE [Suspect]
     Active Substance: QUETIAPINE
     Indication: Suicide attempt
     Dosage: TIME INTERVAL: TOTAL
     Route: 048
     Dates: start: 20250930, end: 20250930
  3. CODEINE [Suspect]
     Active Substance: CODEINE
     Indication: Suicide attempt
     Dosage: TIME INTERVAL: TOTAL
     Route: 048
     Dates: start: 20250930, end: 20250930

REACTIONS (2)
  - Intentional overdose [Recovered/Resolved]
  - Somnolence [Recovered/Resolved]

NARRATIVE: CASE EVENT DATE: 20250930
